FAERS Safety Report 8476373-X (Version None)
Quarter: 2012Q2

REPORT INFORMATION
  Report Type: 
  Country: None (occurrence: None)
  Receive Date: 20120628
  Receipt Date: 20120619
  Transmission Date: 20120825
  Serious: Yes (Hospitalization)
  Sender: FDA-Public Use
  Company Number: US-JNJFOC-20120610337

PATIENT
  Sex: Female
  Weight: 59.6 kg

DRUGS (7)
  1. REMICADE [Suspect]
     Indication: PROPHYLAXIS
     Route: 042
     Dates: start: 20110906
  2. REMICADE [Suspect]
     Indication: INFLAMMATORY BOWEL DISEASE
     Route: 042
     Dates: start: 20110906
  3. METHOTREXATE [Concomitant]
  4. CIPROFLOXACIN HCL [Concomitant]
  5. REMICADE [Suspect]
     Route: 042
     Dates: start: 20110726
  6. REMICADE [Suspect]
     Route: 042
     Dates: start: 20110726
  7. METRONIDAZOLE [Concomitant]

REACTIONS (1)
  - PERIRECTAL ABSCESS [None]
